FAERS Safety Report 21451742 (Version 2)
Quarter: 2023Q1

REPORT INFORMATION
  Report Type: Spontaneous
  Country: US (occurrence: US)
  Receive Date: 20221013
  Receipt Date: 20230108
  Transmission Date: 20230418
  Serious: Yes (Hospitalization, Other)
  Sender: FDA-Public Use
  Company Number: US-BRISTOL-MYERS SQUIBB COMPANY-2022-118466

PATIENT
  Age: 85 Year
  Sex: Male
  Weight: 95.25 kg

DRUGS (3)
  1. OPDIVO [Suspect]
     Active Substance: NIVOLUMAB
     Indication: Malignant melanoma
     Dates: start: 202204
  2. YERVOY [Suspect]
     Active Substance: IPILIMUMAB
     Indication: Malignant melanoma
     Dates: start: 202204
  3. TYLENOL [Concomitant]
     Active Substance: ACETAMINOPHEN
     Indication: Product used for unknown indication

REACTIONS (9)
  - Rash pruritic [Unknown]
  - Diarrhoea [Unknown]
  - Dyspnoea [Recovered/Resolved]
  - Myalgia [Unknown]
  - Arthralgia [Unknown]
  - Blood pressure decreased [Unknown]
  - Renal injury [Unknown]
  - Pulmonary fibrosis [Unknown]
  - Weight decreased [Unknown]

NARRATIVE: CASE EVENT DATE: 20220401
